FAERS Safety Report 23749934 (Version 1)
Quarter: 2024Q2

REPORT INFORMATION
  Report Type: Spontaneous
  Country: DE (occurrence: DE)
  Receive Date: 20240417
  Receipt Date: 20240417
  Transmission Date: 20240716
  Serious: Yes (Other)
  Sender: FDA-Public Use
  Company Number: DE-CHEPLA-2024004503

PATIENT
  Sex: Female

DRUGS (1)
  1. OLANZAPINE [Suspect]
     Active Substance: OLANZAPINE

REACTIONS (4)
  - Heerfordt^s syndrome [Unknown]
  - Dysphagia [Unknown]
  - Pain [Unknown]
  - Foot fracture [Unknown]
